FAERS Safety Report 14506675 (Version 2)
Quarter: 2018Q1

REPORT INFORMATION
  Report Type: Spontaneous
  Country: IT (occurrence: IT)
  Receive Date: 20180208
  Receipt Date: 20180321
  Transmission Date: 20180509
  Serious: Yes (Hospitalization)
  Sender: FDA-Public Use
  Company Number: IT-SA-2018SA028892

PATIENT
  Age: 69 Year
  Sex: Female

DRUGS (7)
  1. PAROXETINE. [Concomitant]
     Active Substance: PAROXETINE
     Route: 065
  2. TAVOR (LORAZEPAM) [Concomitant]
     Active Substance: LORAZEPAM
     Route: 065
  3. LANTUS [Suspect]
     Active Substance: INSULIN GLARGINE
     Route: 058
  4. LUCEN [Concomitant]
     Active Substance: ESOMEPRAZOLE
     Route: 065
  5. TORVAST [Concomitant]
     Active Substance: ATORVASTATIN
     Dosage: STRENGTH: 20 MG
     Route: 065
  6. AMLODIPINE [Concomitant]
     Active Substance: AMLODIPINE BESYLATE
     Route: 065
  7. APIDRA [Suspect]
     Active Substance: INSULIN GLULISINE
     Route: 058

REACTIONS (5)
  - Sopor [Unknown]
  - Head injury [Unknown]
  - Spinal pain [Unknown]
  - Hypoglycaemia [Unknown]
  - Fall [Unknown]

NARRATIVE: CASE EVENT DATE: 20171223
